FAERS Safety Report 8581123-2 (Version None)
Quarter: 2012Q3

REPORT INFORMATION
  Report Type: 
  Country: None (occurrence: None)
  Receive Date: 20120809
  Receipt Date: 20120804
  Transmission Date: 20120928
  Serious: Yes (Death)
  Sender: FDA-Public Use
  Company Number: JP-JNJFOC-20110810638

PATIENT
  Age: 46 Year
  Sex: Male
  Weight: 69 kg

DRUGS (6)
  1. FENTANYL-100 [Suspect]
     Route: 062
  2. DICLOFENAC SODIUM [Concomitant]
     Dosage: AS NEEDED
     Route: 054
  3. FUROSEMIDE [Concomitant]
     Route: 065
  4. FENTANYL-100 [Suspect]
     Route: 062
  5. FENTANYL-100 [Suspect]
     Indication: CANCER PAIN
     Route: 062
  6. LEVOFLOXACIN HYDRATE [Concomitant]
     Route: 065

REACTIONS (3)
  - SPINAL COLUMN STENOSIS [None]
  - PANCREATIC CARCINOMA [None]
  - BACK PAIN [None]
